FAERS Safety Report 23310078 (Version 5)
Quarter: 2024Q2

REPORT INFORMATION
  Report Type: Report from Study
  Country: US (occurrence: US)
  Receive Date: 20231218
  Receipt Date: 20240510
  Transmission Date: 20240716
  Serious: Yes (Life-Threatening, Hospitalization, Other)
  Sender: FDA-Public Use
  Company Number: US-MYLANLABS-2023M1129437

PATIENT
  Sex: Female

DRUGS (1)
  1. PREGABALIN [Suspect]
     Active Substance: PREGABALIN
     Indication: Herpes zoster
     Dosage: UNK
     Route: 065

REACTIONS (6)
  - Skin injury [Unknown]
  - Adverse reaction [Unknown]
  - Illness [Unknown]
  - Myocardial infarction [Unknown]
  - Drug hypersensitivity [Unknown]
  - Drug intolerance [Unknown]
